FAERS Safety Report 8027236-5 (Version None)
Quarter: 2012Q1

REPORT INFORMATION
  Report Type: 
  Country: None (occurrence: None)
  Receive Date: 20120105
  Receipt Date: 20120105
  Transmission Date: 20120608
  Serious: Yes (Hospitalization)
  Sender: FDA-Public Use
  Company Number: None

PATIENT
  Age: 66 Year
  Sex: Male
  Weight: 72.7 kg

DRUGS (2)
  1. BEVACIZUMAB [Suspect]
     Indication: RECTAL CANCER
     Dosage: 600 MG OTHER IV
     Route: 042
     Dates: start: 20110609
  2. OXALIPLATIN [Suspect]
     Indication: RECTAL CANCER
     Dosage: 250 MG OTHER IV
     Route: 042
     Dates: start: 20110609

REACTIONS (4)
  - NAUSEA [None]
  - HYPONATRAEMIA [None]
  - VOMITING [None]
  - ANAEMIA [None]
